FAERS Safety Report 9729121 (Version 2)
Quarter: 2014Q1

REPORT INFORMATION
  Report Type: Spontaneous
  Country: JP (occurrence: JP)
  Receive Date: 20131204
  Receipt Date: 20140130
  Transmission Date: 20141002
  Serious: Yes (Hospitalization)
  Sender: FDA-Public Use
  Company Number: PHHY2013JP137209

PATIENT
  Age: 71 Year
  Sex: Female
  Weight: 45.6 kg

DRUGS (3)
  1. VANCOMYCIN HYDROCHLORIDE [Suspect]
     Indication: STAPHYLOCOCCAL INFECTION
     Dosage: 1 G, UNK
     Route: 042
  2. VANCOMYCIN HYDROCHLORIDE [Suspect]
     Dosage: 2 G, UNK
  3. RIFAMPICIN [Concomitant]
     Dosage: 450 MG, UNK
     Route: 048

REACTIONS (2)
  - Renal disorder [Recovered/Resolved]
  - Eosinophilia [Unknown]
